FAERS Safety Report 9218875 (Version 1)
Quarter: 2013Q2

REPORT INFORMATION
  Report Type: Spontaneous
  Country: FR (occurrence: FR)
  Receive Date: 20130409
  Receipt Date: 20130409
  Transmission Date: 20140414
  Serious: Yes (Death)
  Sender: FDA-Public Use
  Company Number: FR-JNJFOC-20130317402

PATIENT
  Age: 60 Year
  Sex: Male

DRUGS (8)
  1. RISPERDAL [Suspect]
     Indication: PRODUCT USED FOR UNKNOWN INDICATION
     Route: 048
     Dates: end: 20130305
  2. LOXAPAC [Suspect]
     Indication: PRODUCT USED FOR UNKNOWN INDICATION
     Route: 048
     Dates: end: 20130305
  3. LEPTICUR [Suspect]
     Indication: PRODUCT USED FOR UNKNOWN INDICATION
     Route: 048
     Dates: end: 20130305
  4. NOCTAMIDE [Concomitant]
     Route: 065
  5. VALIUM [Concomitant]
     Route: 065
  6. BISOPROLOL [Concomitant]
     Route: 065
  7. AMLODIPINE [Concomitant]
     Route: 065
  8. TEGRETOL [Concomitant]
     Route: 065

REACTIONS (2)
  - Necrotising colitis [Fatal]
  - Septic shock [Fatal]
